FAERS Safety Report 11132488 (Version 1)
Quarter: 2015Q2

REPORT INFORMATION
  Report Type: Spontaneous
  Country: US (occurrence: US)
  Receive Date: 20150522
  Receipt Date: 20150522
  Transmission Date: 20150821
  Serious: Yes (Hospitalization, Other)
  Sender: FDA-Public Use
  Company Number: US-AMGEN-USASP2015048291

PATIENT
  Age: 76 Year
  Sex: Female

DRUGS (1)
  1. ENBREL [Suspect]
     Active Substance: ETANERCEPT
     Indication: RHEUMATOID ARTHRITIS
     Dosage: UNK
     Route: 065
     Dates: start: 2012, end: 201406

REACTIONS (8)
  - Pain [Not Recovered/Not Resolved]
  - Heart rate increased [Unknown]
  - Rib fracture [Unknown]
  - Vomiting [Unknown]
  - Gait disturbance [Not Recovered/Not Resolved]
  - Weight bearing difficulty [Unknown]
  - Foot fracture [Not Recovered/Not Resolved]
  - Arrhythmia [Unknown]

NARRATIVE: CASE EVENT DATE: 201407
